FAERS Safety Report 6729634-6 (Version None)
Quarter: 2010Q2

REPORT INFORMATION
  Report Type: 
  Country: None (occurrence: None)
  Receive Date: 20100512
  Receipt Date: 20100503
  Transmission Date: 20101027
  Serious: Yes (Death, Hospitalization, Other)
  Sender: FDA-Public Use
  Company Number: 2010US001327

PATIENT
  Age: 57 Year
  Sex: Female
  Weight: 56 kg

DRUGS (6)
  1. PROGRAF [Suspect]
     Indication: RENAL TRANSPLANT
     Dosage: 2 MG IN AM, 1.5 IN PM, ORAL
     Route: 048
     Dates: start: 20050917, end: 20100310
  2. CELLCEPT [Concomitant]
  3. SEPTRA [Concomitant]
  4. PROTONIX [Concomitant]
  5. ASPIRIN [Concomitant]
  6. MAGNESIUM OXIDE (MAGNESIUM OXIDE) [Concomitant]

REACTIONS (12)
  - BILIARY NEOPLASM [None]
  - COLON CANCER METASTATIC [None]
  - DEEP VEIN THROMBOSIS [None]
  - DEHYDRATION [None]
  - HAMARTOMA [None]
  - HEPATIC STEATOSIS [None]
  - HYPERTENSION [None]
  - JUGULAR VEIN THROMBOSIS [None]
  - METASTASES TO LIVER [None]
  - NEUROENDOCRINE TUMOUR [None]
  - PELVIC VENOUS THROMBOSIS [None]
  - SUBCLAVIAN VEIN THROMBOSIS [None]
